FAERS Safety Report 9297614 (Version 1)
Quarter: 2013Q2

REPORT INFORMATION
  Report Type: Spontaneous
  Country: US (occurrence: None)
  Receive Date: 20130517
  Receipt Date: 20130517
  Transmission Date: 20140414
  Serious: Yes (Life-Threatening, Other)
  Sender: FDA-Public Use
  Company Number: None

PATIENT
  Age: 40 Year
  Sex: Female
  Weight: 76.2 kg

DRUGS (3)
  1. SAVELLA [Suspect]
     Indication: FIBROMYALGIA
     Dosage: 50MG; AM; PO
     Route: 048
     Dates: start: 20130404, end: 20130516
  2. SAVELLA [Suspect]
     Indication: ROTATOR CUFF SYNDROME
     Dosage: 50MG; AM; PO
     Route: 048
     Dates: start: 20130404, end: 20130516
  3. SAVELLA [Suspect]
     Indication: RADICULOPATHY
     Dosage: 50MG; AM; PO
     Route: 048
     Dates: start: 20130404, end: 20130516

REACTIONS (5)
  - Depression [None]
  - Crying [None]
  - Suicidal ideation [None]
  - Amnesia [None]
  - Aggression [None]
